FAERS Safety Report 5857795-X (Version None)
Quarter: 2008Q3

REPORT INFORMATION
  Report Type: 
  Country: None (occurrence: None)
  Receive Date: 20080822
  Receipt Date: 20080812
  Transmission Date: 20090109
  Serious: Yes (Disabling, Other)
  Sender: FDA-Public Use
  Company Number: GXKR2008GB07622

PATIENT
  Age: 26 Year
  Sex: Female
  Weight: 57 kg

DRUGS (2)
  1. MIRTAZAPINE [Suspect]
     Indication: ANXIETY
     Dosage: 30 MG,
     Dates: start: 20070801
  2. MIRTAZAPINE [Suspect]
     Indication: DEPRESSION
     Dosage: 30 MG,
     Dates: start: 20070801

REACTIONS (2)
  - ANORGASMIA [None]
  - LOSS OF LIBIDO [None]
